FAERS Safety Report 5126984-4 (Version None)
Quarter: 2006Q4

REPORT INFORMATION
  Report Type: 
  Country: None (occurrence: None)
  Receive Date: 20061013
  Receipt Date: 20021105
  Transmission Date: 20070319
  Serious: Yes (Other)
  Sender: FDA-Public Use
  Company Number: PHEH2002US09615

PATIENT
  Age: 77 Year
  Sex: Male
  Weight: 99.773 kg

DRUGS (7)
  1. VITAMIN B-12 [Concomitant]
     Indication: NEUROPATHY PERIPHERAL
     Route: 048
     Dates: start: 20020701
  2. VITAMIN K [Concomitant]
     Dates: start: 19870101
  3. VITAMIN E [Concomitant]
     Dates: start: 19870101
  4. MULTIVITAMIN [Concomitant]
     Dates: start: 19870101
  5. BETACAROTENE [Concomitant]
     Dates: start: 19870101
  6. GLEEVEC [Suspect]
     Indication: CHRONIC MYELOID LEUKAEMIA
     Dosage: 400 MG, QD
     Route: 048
     Dates: start: 20010601
  7. GLEEVEC [Suspect]
     Dosage: 300 MG, QD
     Route: 048

REACTIONS (4)
  - BLOOD GLUCOSE INCREASED [None]
  - HYPOAESTHESIA [None]
  - MUSCLE SPASMS [None]
  - NEUROPATHY PERIPHERAL [None]
